FAERS Safety Report 21870058 (Version 4)
Quarter: 2023Q1

REPORT INFORMATION
  Report Type: Spontaneous
  Country: IT (occurrence: IT)
  Receive Date: 20230117
  Receipt Date: 20230329
  Transmission Date: 20230417
  Serious: Yes (Life-Threatening, Hospitalization, Other)
  Sender: FDA-Public Use
  Company Number: None

PATIENT
  Sex: Male

DRUGS (8)
  1. LEVETIRACETAM [Suspect]
     Active Substance: LEVETIRACETAM
     Indication: Seizure
     Dosage: 20 MILLIGRAM/KILOGRAM LOAD DOSE
  2. LEVETIRACETAM [Suspect]
     Active Substance: LEVETIRACETAM
     Dosage: 60 MILLIGRAM/KILOGRAM, MAINTENANCE DOSE OF 60MG/(KG/DAY)
  3. MIDAZOLAM [Suspect]
     Active Substance: MIDAZOLAM
     Indication: Seizure
     Dosage: 0.24 MILLIGRAM/KILOGRAM, HOURLY, , TITRATED UP TO 0.24 MG/(KG/H)]
  4. MIDAZOLAM [Suspect]
     Active Substance: MIDAZOLAM
     Dosage: 0.06 MILLIGRAM/KILOGRAM, HOURLY, MIDAZOLAM [0.06 MG/(KG/H)
  5. FENTANYL [Suspect]
     Active Substance: FENTANYL
     Indication: Hypoxic-ischaemic encephalopathy
     Dosage: 1 MICROGRAM/KILOGRAM, HOURLY, 1 UG/(KG/H)
  6. FENTANYL [Suspect]
     Active Substance: FENTANYL
     Indication: Therapeutic hypothermia
     Dosage: 3 MICROGRAM/KILOGRAM, HOURLY, 3 UG/(KG/H)
  7. PHENOBARBITAL [Suspect]
     Active Substance: PHENOBARBITAL
     Indication: Seizure
     Dosage: 20 MG/KG
     Route: 065
  8. PHENOBARBITAL [Suspect]
     Active Substance: PHENOBARBITAL
     Dosage: MAINTENANCE 5 MG/(KG/D)
     Route: 065

REACTIONS (6)
  - Misleading laboratory test result [Recovered/Resolved]
  - Coma [Recovered/Resolved]
  - Electroencephalogram abnormal [Recovered/Resolved]
  - Condition aggravated [Recovered/Resolved]
  - Drug ineffective [Unknown]
  - Product use issue [Unknown]
